FAERS Safety Report 5695185-3 (Version None)
Quarter: 2008Q2

REPORT INFORMATION
  Report Type: 
  Country: None (occurrence: None)
  Receive Date: 20080404
  Receipt Date: 20080325
  Transmission Date: 20081010
  Serious: Yes (Other)
  Sender: FDA-Public Use
  Company Number: JP-PFIZER INC-2008027192

PATIENT
  Age: 34 Year
  Sex: Female

DRUGS (4)
  1. GABAPEN [Suspect]
     Indication: PARTIAL SEIZURES
     Dosage: DAILY DOSE:1600MG
     Route: 048
     Dates: start: 20060101, end: 20061120
  2. VALPROATE SODIUM [Suspect]
     Indication: PARTIAL SEIZURES
     Dosage: DAILY DOSE:2100MG
     Route: 048
  3. PHENYTOIN SODIUM [Suspect]
     Indication: PARTIAL SEIZURES
     Dosage: DAILY DOSE:320MG
     Route: 048
  4. CLONAZEPAM [Concomitant]
     Route: 048

REACTIONS (4)
  - ASTHENIA [None]
  - EPILEPSY [None]
  - FALL [None]
  - VERTEBRAL INJURY [None]
